FAERS Safety Report 5625428-3 (Version None)
Quarter: 2008Q1

REPORT INFORMATION
  Report Type: 
  Country: None (occurrence: None)
  Receive Date: 20080211
  Receipt Date: 20080124
  Transmission Date: 20080703
  Serious: Yes (Hospitalization)
  Sender: FDA-Public Use
  Company Number: A-NJ2007-14136

PATIENT
  Age: 65 Year
  Sex: Female

DRUGS (3)
  1. TRACLEER [Suspect]
     Indication: PULMONARY HYPERTENSION
     Dosage: ORAL
     Route: 048
     Dates: start: 20061204
  2. SILDENAFIL CITRATE [Concomitant]
  3. REMODULIN (TREPROSTINIL) [Concomitant]

REACTIONS (10)
  - ALANINE AMINOTRANSFERASE INCREASED [None]
  - ASPARTATE AMINOTRANSFERASE INCREASED [None]
  - BLOOD ALKALINE PHOSPHATASE INCREASED [None]
  - CONDITION AGGRAVATED [None]
  - DIZZINESS [None]
  - FLUID RETENTION [None]
  - OEDEMA PERIPHERAL [None]
  - RASH GENERALISED [None]
  - RENAL FAILURE CHRONIC [None]
  - WEIGHT INCREASED [None]
